FAERS Safety Report 6225724-5 (Version None)
Quarter: 2009Q2

REPORT INFORMATION
  Report Type: 
  Country: None (occurrence: None)
  Receive Date: 20090612
  Receipt Date: 20090430
  Transmission Date: 20091009
  Serious: No
  Sender: FDA-Public Use
  Company Number: US-ABBOTT-09P-163-0571014-00

PATIENT
  Sex: Male
  Weight: 88.53 kg

DRUGS (3)
  1. HUMIRA [Suspect]
     Indication: RHEUMATOID ARTHRITIS
     Route: 058
  2. OMEPRAZOLE [Concomitant]
     Indication: DRUG USE FOR UNKNOWN INDICATION
  3. RELAFIN [Concomitant]
     Indication: ARTHRITIS

REACTIONS (3)
  - DIZZINESS [None]
  - ILL-DEFINED DISORDER [None]
  - NASOPHARYNGITIS [None]
